FAERS Safety Report 24812911 (Version 4)
Quarter: 2025Q3

REPORT INFORMATION
  Report Type: Report from Study
  Country: MY (occurrence: MY)
  Receive Date: 20250107
  Receipt Date: 20250903
  Transmission Date: 20251021
  Serious: Yes (Other)
  Sender: ALEXION PHARMACEUTICALS
  Company Number: MY-AstraZeneca-CH-00778036A

PATIENT
  Sex: Male

DRUGS (2)
  1. FASENRA [Suspect]
     Active Substance: BENRALIZUMAB
  2. FASENRA [Suspect]
     Active Substance: BENRALIZUMAB

REACTIONS (2)
  - Spinal disorder [Unknown]
  - Back pain [Unknown]
